FAERS Safety Report 11050334 (Version 1)
Quarter: 2015Q2

REPORT INFORMATION
  Report Type: Spontaneous
  Country: FR (occurrence: FR)
  Receive Date: 20150421
  Receipt Date: 20150421
  Transmission Date: 20150821
  Serious: Yes (Hospitalization)
  Sender: FDA-Public Use
  Company Number: FR-PFIZER INC-2015133540

PATIENT
  Age: 86 Year
  Sex: Female

DRUGS (7)
  1. LASILIX [Concomitant]
     Active Substance: FUROSEMIDE
     Dosage: UNK
  2. PRADAXA [Interacting]
     Active Substance: DABIGATRAN ETEXILATE MESYLATE
     Indication: ATRIAL FIBRILLATION
     Dosage: 110 MG, 2X/DAY
     Route: 048
     Dates: end: 20150208
  3. AUGMENTIN [Concomitant]
     Active Substance: AMOXICILLIN\CLAVULANATE POTASSIUM
     Dosage: UNK
  4. LEVOTHYROX [Concomitant]
     Active Substance: LEVOTHYROXINE
     Dosage: UNK
  5. GLYCERYL TRINITRATE [Concomitant]
     Active Substance: NITROGLYCERIN
     Dosage: UNK
  6. TOPALGIC [Concomitant]
     Active Substance: TRAMADOL
     Dosage: UNK
  7. CORDARONE [Suspect]
     Active Substance: AMIODARONE HYDROCHLORIDE
     Indication: ATRIAL FIBRILLATION
     Dosage: 1 DF, 2X/DAY
     Route: 048

REACTIONS (5)
  - Pericardial effusion [Recovered/Resolved]
  - Potentiating drug interaction [Unknown]
  - Bronchopneumonia [Unknown]
  - Cardiac tamponade [Unknown]
  - Pericardial haemorrhage [Recovered/Resolved]

NARRATIVE: CASE EVENT DATE: 20150208
